FAERS Safety Report 6938802-X (Version None)
Quarter: 2010Q3

REPORT INFORMATION
  Report Type: 
  Country: None (occurrence: None)
  Receive Date: 20100824
  Receipt Date: 20100816
  Transmission Date: 20110219
  Serious: Yes (Other)
  Sender: FDA-Public Use
  Company Number: US-ROCHE-721737

PATIENT
  Sex: Female
  Weight: 81.6 kg

DRUGS (20)
  1. ACTEMRA [Suspect]
     Route: 042
     Dates: start: 20100405
  2. ACTEMRA [Suspect]
     Route: 042
     Dates: start: 20100505
  3. ACTEMRA [Suspect]
     Route: 042
     Dates: start: 20100605
  4. ACTEMRA [Suspect]
     Route: 042
     Dates: start: 20100707, end: 20100804
  5. METHOTREXATE [Concomitant]
  6. CYMBALTA [Concomitant]
     Dosage: QAM
  7. FOLIC ACID [Concomitant]
  8. SYNTHROID [Concomitant]
  9. PRAVASTATIN [Concomitant]
     Dosage: DRUG REPORTED: PREVASTATIN
  10. LISINOPRIL AND HYDROCHLOROTHIAZIDE [Concomitant]
     Dosage: DRUG REPORTED: LISINOPRIL-HCTZ
  11. PREDNISONE [Concomitant]
     Dosage: QAM
  12. NEXIUM [Concomitant]
     Dosage: QAM
  13. CELEBREX [Concomitant]
  14. RANITIDINE [Concomitant]
     Dosage: QAS
  15. TRAZODONE HCL [Concomitant]
     Dosage: STRENGTH: 150 MG AND 100 MG
  16. HYDROXYZINE [Concomitant]
  17. METOPROLOL [Concomitant]
     Dosage: FREQUENCY: HS
  18. ACETAMINOPHEN [Concomitant]
  19. RHINOCORT [Concomitant]
     Dosage: NASAL SPRAY
  20. GABAPENTIN [Concomitant]
     Dosage: DRUG REPORTED: ABAPENTIN 1000 MG AND ABAPENTIN 3000 MG

REACTIONS (1)
  - OPTIC NEURITIS [None]
